FAERS Safety Report 19594199 (Version 1)
Quarter: 2021Q3

REPORT INFORMATION
  Report Type: Spontaneous
  Country: US (occurrence: US)
  Receive Date: 20210722
  Receipt Date: 20210722
  Transmission Date: 20211014
  Serious: Yes (Other)
  Sender: FDA-Public Use
  Company Number: US-APNAR-000100

PATIENT
  Age: 35 Year
  Sex: Female

DRUGS (5)
  1. HYDROXYCHLOROQUINE [Concomitant]
     Active Substance: HYDROXYCHLOROQUINE
     Indication: RASH
  2. BUPROPION. [Suspect]
     Active Substance: BUPROPION
     Indication: DEPRESSION
  3. PREDNISONE. [Concomitant]
     Active Substance: PREDNISONE
     Indication: RASH
  4. DAPSONE. [Concomitant]
     Active Substance: DAPSONE
     Indication: RASH
  5. MEPACRINE [Concomitant]
     Active Substance: QUINACRINE
     Indication: RASH

REACTIONS (1)
  - Subacute cutaneous lupus erythematosus [Recovered/Resolved]
